FAERS Safety Report 12616990 (Version 1)
Quarter: 2016Q3

REPORT INFORMATION
  Report Type: Spontaneous
  Country: US (occurrence: US)
  Receive Date: 20160803
  Receipt Date: 20160803
  Transmission Date: 20161109
  Serious: Yes (Other)
  Sender: FDA-Public Use
  Company Number: US-JAZZ-2016-US-012050

PATIENT
  Sex: Female

DRUGS (34)
  1. CYTOMEL [Concomitant]
     Active Substance: LIOTHYRONINE SODIUM
  2. DHEA [Concomitant]
     Active Substance: PRASTERONE
  3. OMEGA 3 FISH OIL [Concomitant]
     Active Substance: FISH OIL\OMEGA-3 FATTY ACIDS
  4. VALTREX [Concomitant]
     Active Substance: VALACYCLOVIR HYDROCHLORIDE
  5. IMITREX [Concomitant]
     Active Substance: SUMATRIPTAN SUCCINATE
  6. RITALIN [Concomitant]
     Active Substance: METHYLPHENIDATE HYDROCHLORIDE
  7. HYDROCODONE/ACETAMINOPHEN [Concomitant]
     Active Substance: ACETAMINOPHEN\HYDROCODONE
  8. ZOFRAN [Concomitant]
     Active Substance: ONDANSETRON HYDROCHLORIDE
  9. NAPROXEN SODIUM. [Concomitant]
     Active Substance: NAPROXEN SODIUM
  10. XYREM [Suspect]
     Active Substance: SODIUM OXYBATE
     Indication: CATAPLEXY
  11. CLONAZEPAM. [Concomitant]
     Active Substance: CLONAZEPAM
  12. CYMBALTA [Concomitant]
     Active Substance: DULOXETINE HYDROCHLORIDE
  13. ALPRAZOLAM. [Concomitant]
     Active Substance: ALPRAZOLAM
  14. ADDERALL XR [Concomitant]
     Active Substance: AMPHETAMINE ASPARTATE\AMPHETAMINE SULFATE\DEXTROAMPHETAMINE SACCHARATE\DEXTROAMPHETAMINE SULFATE
  15. POTASSIUM [Concomitant]
     Active Substance: POTASSIUM
  16. SUPER LYSINE [Concomitant]
  17. ALBUTEROL SULFATE HFA [Concomitant]
  18. ARMOUR THYROID [Concomitant]
     Active Substance: THYROID, PORCINE
  19. MULTIVITAMINS [Concomitant]
     Active Substance: VITAMINS
  20. PROGESTERONE. [Concomitant]
     Active Substance: PROGESTERONE
  21. ALEVE [Concomitant]
     Active Substance: NAPROXEN SODIUM
  22. LEVOTHYROXINE. [Concomitant]
     Active Substance: LEVOTHYROXINE
  23. XYREM [Suspect]
     Active Substance: SODIUM OXYBATE
     Indication: NARCOLEPSY
     Dosage: 2.25 G, BID
     Route: 048
     Dates: start: 201601, end: 2016
  24. SPIRONOLACTONE. [Concomitant]
     Active Substance: SPIRONOLACTONE
  25. FAMOTIDINE. [Concomitant]
     Active Substance: FAMOTIDINE
  26. MELATONIN [Concomitant]
     Active Substance: MELATONIN
  27. METFORMIN HCL [Concomitant]
     Active Substance: METFORMIN HYDROCHLORIDE
  28. FLEXERIL [Concomitant]
     Active Substance: CYCLOBENZAPRINE HYDROCHLORIDE
  29. REGLAN [Concomitant]
     Active Substance: METOCLOPRAMIDE HYDROCHLORIDE
  30. ANDROGEL [Concomitant]
     Active Substance: TESTOSTERONE
  31. CALCIUM MAGNESIUM [Concomitant]
     Active Substance: CALCIUM\MAGNESIUM
  32. VITAMIN D [Concomitant]
     Active Substance: CHOLECALCIFEROL
  33. ADIPEX-P [Concomitant]
     Active Substance: PHENTERMINE HYDROCHLORIDE
  34. DEXAMETHASONE ISONIC [Concomitant]

REACTIONS (5)
  - Fasciitis [Unknown]
  - Diverticulitis [Unknown]
  - Malaise [Unknown]
  - Abdominal pain upper [Unknown]
  - Condition aggravated [Not Recovered/Not Resolved]

NARRATIVE: CASE EVENT DATE: 2016
